FAERS Safety Report 23230432 (Version 1)
Quarter: 2023Q4

REPORT INFORMATION
  Report Type: Spontaneous
  Country: US (occurrence: US)
  Receive Date: 20231127
  Receipt Date: 20231127
  Transmission Date: 20240109
  Serious: Yes (Life-Threatening, Hospitalization, Other)
  Sender: FDA-Public Use
  Company Number: US-SANDOZ-SDZ2023US058020

PATIENT
  Age: 47 Year
  Sex: Male

DRUGS (10)
  1. DILTIAZEM [Suspect]
     Active Substance: DILTIAZEM
     Indication: Thyrotoxic crisis
     Dosage: UNK
     Route: 065
  2. DILTIAZEM [Suspect]
     Active Substance: DILTIAZEM
     Indication: Atrial fibrillation
  3. HYDROCORTISONE [Suspect]
     Active Substance: HYDROCORTISONE
     Indication: Thyrotoxic crisis
     Route: 065
  4. HYDROCORTISONE [Suspect]
     Active Substance: HYDROCORTISONE
     Indication: Atrial fibrillation
  5. IODINE [Suspect]
     Active Substance: IODINE
     Indication: Thyrotoxic crisis
     Route: 065
  6. IODINE [Suspect]
     Active Substance: IODINE
     Indication: Atrial fibrillation
  7. PROPRANOLOL [Suspect]
     Active Substance: PROPRANOLOL HYDROCHLORIDE
     Indication: Thyrotoxic crisis
     Route: 065
  8. PROPRANOLOL [Suspect]
     Active Substance: PROPRANOLOL HYDROCHLORIDE
     Indication: Atrial fibrillation
  9. PROPYLTHIOURACIL [Suspect]
     Active Substance: PROPYLTHIOURACIL
     Indication: Thyrotoxic crisis
     Route: 065
  10. PROPYLTHIOURACIL [Suspect]
     Active Substance: PROPYLTHIOURACIL
     Indication: Atrial fibrillation

REACTIONS (2)
  - Cardiogenic shock [Recovering/Resolving]
  - Drug ineffective [Unknown]
